FAERS Safety Report 10086131 (Version 1)
Quarter: 2014Q2

REPORT INFORMATION
  Report Type: Spontaneous
  Country: FR (occurrence: FR)
  Receive Date: 20140418
  Receipt Date: 20140418
  Transmission Date: 20141212
  Serious: Yes (Hospitalization)
  Sender: FDA-Public Use
  Company Number: FR-SA-2014SA049821

PATIENT
  Age: 62 Year
  Sex: Male

DRUGS (12)
  1. TAVANIC [Suspect]
     Indication: ARTERIOVENOUS GRAFT SITE INFECTION
     Route: 065
     Dates: start: 20140314, end: 20140331
  2. DEPAKINE [Suspect]
     Indication: PRODUCT USED FOR UNKNOWN INDICATION
     Dosage: MORNING
     Route: 065
  3. RIFAMPICIN [Suspect]
     Indication: ARTERIOVENOUS GRAFT SITE INFECTION
     Route: 048
     Dates: start: 20140213, end: 20140328
  4. BRISTOPEN [Suspect]
     Indication: ARTERIOVENOUS GRAFT SITE INFECTION
     Route: 065
     Dates: start: 20140213, end: 20140401
  5. INEXIUM [Suspect]
     Indication: PRODUCT USED FOR UNKNOWN INDICATION
     Route: 065
     Dates: end: 20140331
  6. LOVENOX [Concomitant]
  7. INEGY [Concomitant]
  8. BISOPROLOL [Concomitant]
  9. LASILIX [Concomitant]
  10. KARDEGIC [Concomitant]
  11. AERIUS [Concomitant]
  12. ZINC [Concomitant]

REACTIONS (1)
  - Neutropenia [Unknown]
